FAERS Safety Report 6175689-X (Version None)
Quarter: 2009Q2

REPORT INFORMATION
  Report Type: 
  Country: None (occurrence: None)
  Receive Date: 20090427
  Receipt Date: 20090102
  Transmission Date: 20091009
  Serious: Yes (Hospitalization)
  Sender: FDA-Public Use
  Company Number: TEST00209000036

PATIENT
  Age: 63 Year
  Sex: Male
  Weight: 77.273 kg

DRUGS (1)
  1. ANDROGEL [Suspect]
     Indication: BLOOD TESTOSTERONE DECREASED
     Dosage: 2.5 GRAM (S) QD TRANSCUTANEOUS DAILY DOSE: 2.5 GRAM(S)
     Route: 062
     Dates: start: 20081101, end: 20081101

REACTIONS (1)
  - DYSURIA [None]
